FAERS Safety Report 7516241-0 (Version None)
Quarter: 2011Q2

REPORT INFORMATION
  Report Type: 
  Country: None (occurrence: None)
  Receive Date: 20110426
  Receipt Date: 20100723
  Transmission Date: 20111010
  Serious: Yes (Other)
  Sender: FDA-Public Use
  Company Number: 20100343

PATIENT
  Sex: Female

DRUGS (1)
  1. DEXFERRUM [Suspect]
     Dosage: ^TEST DOSE^

REACTIONS (2)
  - LOSS OF CONSCIOUSNESS [None]
  - HYPOTENSION [None]
